FAERS Safety Report 10700310 (Version 1)
Quarter: 2015Q1

REPORT INFORMATION
  Report Type: Spontaneous
  Country: US (occurrence: US)
  Receive Date: 20150109
  Receipt Date: 20150109
  Transmission Date: 20150721
  Serious: Yes (Other)
  Sender: FDA-Public Use
  Company Number: US-BAYER-2015-000165

PATIENT
  Age: 64 Year
  Sex: Female
  Weight: 91 kg

DRUGS (4)
  1. ALEVE [Suspect]
     Active Substance: NAPROXEN SODIUM
     Indication: ARTHRALGIA
     Dosage: 1 DF, QD
     Dates: start: 2014, end: 20141229
  2. LEXAPRO [Concomitant]
     Active Substance: ESCITALOPRAM OXALATE
  3. PRILOSEC [Concomitant]
     Active Substance: OMEPRAZOLE MAGNESIUM
  4. LISINOPRIL. [Concomitant]
     Active Substance: LISINOPRIL

REACTIONS (11)
  - Swelling face [Unknown]
  - Exfoliative rash [Unknown]
  - Incorrect drug administration duration [None]
  - Fatigue [Unknown]
  - Systemic lupus erythematosus [Unknown]
  - Rash [Unknown]
  - Hypersensitivity [None]
  - Eyelid oedema [Unknown]
  - Photophobia [Unknown]
  - Nausea [Not Recovered/Not Resolved]
  - Oedema [Unknown]

NARRATIVE: CASE EVENT DATE: 2014
